FAERS Safety Report 16157450 (Version 2)
Quarter: 2019Q3

REPORT INFORMATION
  Report Type: Spontaneous
  Country: US (occurrence: US)
  Receive Date: 20190404
  Receipt Date: 20190709
  Transmission Date: 20191004
  Serious: No
  Sender: FDA-Public Use
  Company Number: US-PFIZER INC-2019143210

PATIENT
  Age: 85 Year
  Sex: Male

DRUGS (5)
  1. EUCRISA [Suspect]
     Active Substance: CRISABOROLE
     Indication: RASH
  2. EUCRISA [Suspect]
     Active Substance: CRISABOROLE
     Indication: ECZEMA
  3. GENTAMYCIN [GENTAMICIN] [Concomitant]
     Active Substance: GENTAMICIN
     Dosage: UNK, AS NEEDED, (APPLY TWICE A DAY AS NEEDED)
     Dates: start: 20190225
  4. EUCRISA [Suspect]
     Active Substance: CRISABOROLE
     Indication: WOUND COMPLICATION
     Dosage: UNK, 2X/DAY
     Dates: start: 20190219, end: 20190219
  5. MOMETASONE FUROATE. [Concomitant]
     Active Substance: MOMETASONE FUROATE
     Dosage: UNK, AS NEEDED, (APPLY TWICE A DAY AS NEEDED)
     Dates: start: 20190225

REACTIONS (1)
  - Therapeutic product effect decreased [Not Recovered/Not Resolved]
